FAERS Safety Report 17289680 (Version 1)
Quarter: 2020Q1

REPORT INFORMATION
  Report Type: Spontaneous
  Country: US (occurrence: US)
  Receive Date: 20200120
  Receipt Date: 20200120
  Transmission Date: 20200409
  Serious: Yes (Hospitalization, Other)
  Sender: FDA-Public Use
  Company Number: US-ABBVIE-20K-163-3232166-00

PATIENT
  Age: 67 Year
  Sex: Female
  Weight: 108.86 kg

DRUGS (4)
  1. XELJANZ XR [Suspect]
     Active Substance: TOFACITINIB CITRATE
     Dosage: 11 MG, 1 TABLET ONCE DAILY BY MOUTH
     Route: 048
     Dates: start: 2019
  2. HUMIRA [Suspect]
     Active Substance: ADALIMUMAB
     Indication: PSORIATIC ARTHROPATHY
     Route: 058
     Dates: start: 2012
  3. XELJANZ XR [Suspect]
     Active Substance: TOFACITINIB CITRATE
     Indication: PSORIATIC ARTHROPATHY
     Dosage: 11 MG, 2 TABLET ONCE DAILY BY MOUTH
     Route: 048
     Dates: start: 201902, end: 2019
  4. HIZENTRA [Concomitant]
     Active Substance: HUMAN IMMUNOGLOBULIN G
     Indication: PRODUCT USED FOR UNKNOWN INDICATION
     Dosage: 50MG, SUBCUTANEOUS INFUSION, EVERY MONDAY
     Route: 058
     Dates: start: 2016

REACTIONS (6)
  - Peroneal nerve palsy [Recovered/Resolved]
  - Spinal fusion surgery [Unknown]
  - Colitis microscopic [Not Recovered/Not Resolved]
  - Enthesopathy [Not Recovered/Not Resolved]
  - Pneumonia [Unknown]
  - Neuropathy peripheral [Recovered/Resolved]

NARRATIVE: CASE EVENT DATE: 2015
